FAERS Safety Report 26049597 (Version 1)
Quarter: 2025Q4

REPORT INFORMATION
  Report Type: Spontaneous
  Country: EU (occurrence: EU)
  Receive Date: 20251115
  Receipt Date: 20251115
  Transmission Date: 20260117
  Serious: Yes (Hospitalization, Other)
  Sender: ABBVIE
  Company Number: None

PATIENT
  Age: 35 Year
  Sex: Female

DRUGS (6)
  1. SKYRIZI [Suspect]
     Active Substance: RISANKIZUMAB-RZAA
     Indication: Psoriatic arthropathy
     Route: 058
     Dates: start: 20250723, end: 20250727
  2. LORAZEPAM [Concomitant]
     Active Substance: LORAZEPAM
     Indication: Product used for unknown indication
     Dosage: 50 TABLETS
  3. DISBRON [Concomitant]
     Indication: Product used for unknown indication
     Dosage: 25,000 UI, 4 CAPSULES
  4. DEPRAX [Concomitant]
     Indication: Product used for unknown indication
     Dosage: 30 TABLETS
  5. BIMOTIL [Concomitant]
     Indication: Product used for unknown indication
     Dosage: 30 SACHETS
  6. DULOXETINE HYDROCHLORIDE [Concomitant]
     Active Substance: DULOXETINE HYDROCHLORIDE
     Indication: Product used for unknown indication

REACTIONS (4)
  - Optic neuropathy [Recovered/Resolved with Sequelae]
  - Rash [Recovered/Resolved with Sequelae]
  - Headache [Recovered/Resolved with Sequelae]
  - Abdominal discomfort [Recovered/Resolved with Sequelae]

NARRATIVE: CASE EVENT DATE: 20250726
